FAERS Safety Report 17689625 (Version 2)
Quarter: 2020Q2

REPORT INFORMATION
  Report Type: Spontaneous
  Country: US (occurrence: US)
  Receive Date: 20200421
  Receipt Date: 20200527
  Transmission Date: 20200714
  Serious: No
  Sender: FDA-Public Use
  Company Number: US-STRONGBRIDGE BIOPHARMA-2020-STR-000099

PATIENT
  Sex: Female

DRUGS (2)
  1. KEVEYIS [Suspect]
     Active Substance: DICHLORPHENAMIDE
     Indication: FAMILIAL PERIODIC PARALYSIS
     Dosage: 25 MG, BID
     Route: 048
  2. KEVEYIS [Suspect]
     Active Substance: DICHLORPHENAMIDE
     Dosage: 25 MG, BID
     Route: 048

REACTIONS (10)
  - Pain in extremity [Unknown]
  - Mucosal inflammation [Unknown]
  - Rash erythematous [Unknown]
  - Rash [Unknown]
  - Stomatitis [Unknown]
  - Ligament sprain [Unknown]
  - Skin ulcer [Unknown]
  - Wrong technique in product usage process [Unknown]
  - Fall [Unknown]
  - Fatigue [Unknown]
